FAERS Safety Report 23691518 (Version 1)
Quarter: 2024Q2

REPORT INFORMATION
  Report Type: Spontaneous
  Country: IN (occurrence: IN)
  Receive Date: 20240401
  Receipt Date: 20240401
  Transmission Date: 20240716
  Serious: Yes (Death, Life-Threatening, Hospitalization, Other)
  Sender: FDA-Public Use
  Company Number: IN-MLMSERVICE-20240314-4887143-3

PATIENT
  Age: 74 Year
  Sex: Female

DRUGS (4)
  1. ROSUVASTATIN CALCIUM [Interacting]
     Active Substance: ROSUVASTATIN CALCIUM
     Indication: Angina unstable
  2. TICAGRELOR [Interacting]
     Active Substance: TICAGRELOR
     Indication: Antiplatelet therapy
  3. RAMIPRIL [Concomitant]
     Active Substance: RAMIPRIL
     Route: 048
  4. ASPIRIN [Concomitant]
     Active Substance: ASPIRIN

REACTIONS (3)
  - Rhabdomyolysis [Fatal]
  - Drug interaction [Fatal]
  - Acute kidney injury [Fatal]
